FAERS Safety Report 7188895-2 (Version None)
Quarter: 2010Q4

REPORT INFORMATION
  Report Type: 
  Country: None (occurrence: None)
  Receive Date: 20101222
  Receipt Date: 20101213
  Transmission Date: 20110411
  Serious: Yes (Other)
  Sender: FDA-Public Use
  Company Number: CA-ASTRAZENECA-2010SE58470

PATIENT
  Age: 54 Year
  Sex: Female

DRUGS (1)
  1. IRESSA [Suspect]
     Indication: NEOPLASM MALIGNANT
     Route: 048
     Dates: start: 20101010

REACTIONS (5)
  - CONTUSION [None]
  - DECREASED APPETITE [None]
  - DIZZINESS [None]
  - FALL [None]
  - WEIGHT DECREASED [None]
